FAERS Safety Report 5109770-0 (Version None)
Quarter: 2006Q3

REPORT INFORMATION
  Report Type: 
  Country: None (occurrence: None)
  Receive Date: 20060915
  Receipt Date: 20060905
  Transmission Date: 20061208
  Serious: Yes (Death, Other)
  Sender: FDA-Public Use
  Company Number: 2006108512

PATIENT
  Age: 46 Year
  Sex: Male
  Weight: 80 kg

DRUGS (11)
  1. FLUCONAZOLE [Suspect]
     Indication: FUNGAL INFECTION
     Dosage: 50 MG (1 IN 1 D), ORAL
     Route: 048
  2. DURAGESIC-100 [Suspect]
     Indication: PAIN
     Dosage: 150 UG/H, TRANSDERMAL
     Route: 062
  3. MORPHINE [Concomitant]
  4. DICLOFENAC SODIUM [Concomitant]
  5. ACETAMINOPHEN [Concomitant]
  6. OXAZEPAM [Concomitant]
  7. ZOLPIDEM TARTRATE [Concomitant]
  8. NYSTATINE (NYSTATIN) [Concomitant]
  9. LIDOCAINE [Concomitant]
  10. LACTULOSE [Concomitant]
  11. METOCLOPRAMIDE [Concomitant]

REACTIONS (9)
  - BRAIN OEDEMA [None]
  - DRUG INTERACTION [None]
  - DRUG LEVEL INCREASED [None]
  - DRUG TOXICITY [None]
  - DYSPHAGIA [None]
  - ORAL FUNGAL INFECTION [None]
  - PULMONARY CONGESTION [None]
  - RESPIRATORY DEPRESSION [None]
  - SHOCK [None]
